FAERS Safety Report 23141660 (Version 3)
Quarter: 2023Q4

REPORT INFORMATION
  Report Type: Report from Study
  Country: KR (occurrence: KR)
  Receive Date: 20231103
  Receipt Date: 20231221
  Transmission Date: 20240110
  Serious: Yes (Other)
  Sender: FDA-Public Use
  Company Number: KR-TAKEDA-2023TUS104906

PATIENT
  Sex: Female

DRUGS (11)
  1. BRIGATINIB [Suspect]
     Active Substance: BRIGATINIB
     Indication: Non-small cell lung cancer
     Dosage: 90 MILLIGRAM, QD
     Route: 065
     Dates: start: 20230213, end: 20230219
  2. BRIGATINIB [Suspect]
     Active Substance: BRIGATINIB
     Dosage: 180 MILLIGRAM, QD
     Route: 065
     Dates: start: 20230220
  3. EZETIMIBE\PITAVASTATIN CALCIUM [Concomitant]
     Active Substance: EZETIMIBE\PITAVASTATIN CALCIUM
     Indication: Hyperlipidaemia
     Dosage: 4/10 MILLIGRAM
     Route: 048
     Dates: start: 20230208
  4. AMVALTAN [Concomitant]
     Indication: Hypertension
     Dosage: 5/80 MILLIGRAM
     Route: 048
     Dates: start: 20230208
  5. PANPIROC [Concomitant]
     Indication: Gastritis prophylaxis
     Dosage: 20 MILLIGRAM
     Route: 048
     Dates: start: 20230208
  6. NITROFURANTOIN [Concomitant]
     Active Substance: NITROFURANTOIN
     Indication: Gastritis prophylaxis
     Dosage: UNK
     Route: 048
     Dates: start: 20230208
  7. SYNTHROID [Concomitant]
     Active Substance: LEVOTHYROXINE SODIUM
     Indication: Hypothyroidism
     Dosage: 0.05 MILLIGRAM
     Route: 048
     Dates: start: 20230208
  8. EPOCILLIN [Concomitant]
     Indication: Pleural effusion
     Dosage: 2 GRAM
     Route: 042
     Dates: start: 20230206
  9. Disolrin [Concomitant]
     Indication: Pleural effusion
     Dosage: 40 MILLIGRAM
     Route: 042
     Dates: start: 20230207
  10. DANACOUGH [Concomitant]
     Indication: Pleural effusion
     Dosage: 60 MILLILITER
     Route: 048
     Dates: start: 20230208
  11. CODEINE PHOSPHATE [Concomitant]
     Active Substance: CODEINE PHOSPHATE
     Indication: Pleural effusion
     Dosage: 60 MILLIGRAM
     Route: 048
     Dates: start: 20230207

REACTIONS (1)
  - Bipolar II disorder [Recovering/Resolving]

NARRATIVE: CASE EVENT DATE: 20230302
